FAERS Safety Report 5489107-8 (Version None)
Quarter: 2007Q4

REPORT INFORMATION
  Report Type: 
  Country: None (occurrence: None)
  Receive Date: 20071018
  Receipt Date: 20071008
  Transmission Date: 20080405
  Serious: Yes (Hospitalization)
  Sender: FDA-Public Use
  Company Number: PHHO2007IL15865

PATIENT
  Age: 71 Year
  Sex: Female
  Weight: 71 kg

DRUGS (4)
  1. EXJADE [Suspect]
     Indication: IRON OVERLOAD
     Dosage: 1375 MG, QD
     Route: 048
     Dates: start: 20070911, end: 20070922
  2. NORMITEN [Concomitant]
     Indication: HYPERTENSION
     Dates: start: 20020101
  3. DISOTHIAZIDE [Concomitant]
     Indication: HYPERTENSION
     Dates: start: 20030101
  4. GLUCOPHAGE [Concomitant]
     Indication: DIABETES MELLITUS
     Dates: start: 20070401

REACTIONS (5)
  - DRUG HYPERSENSITIVITY [None]
  - DYSPNOEA [None]
  - PYREXIA [None]
  - URINARY TRACT INFECTION [None]
  - URTICARIA [None]
